FAERS Safety Report 11740452 (Version 2)
Quarter: 2015Q4

REPORT INFORMATION
  Report Type: Spontaneous
  Country: US (occurrence: US)
  Receive Date: 20151110
  Receipt Date: 20151120
  Transmission Date: 20160304
  Serious: No
  Sender: FDA-Public Use
  Company Number: US-ELI_LILLY_AND_COMPANY-US201203006106

PATIENT
  Sex: Male

DRUGS (1)
  1. FORTEO [Suspect]
     Active Substance: TERIPARATIDE
     Indication: OSTEOPOROSIS
     Dosage: UNK, QD
     Route: 065
     Dates: start: 20120201, end: 201212

REACTIONS (6)
  - Swelling [Unknown]
  - Pain [Unknown]
  - Blood pressure increased [Unknown]
  - Arthralgia [Unknown]
  - Drug ineffective [Unknown]
  - Arthritis [Unknown]
